FAERS Safety Report 4984218-5 (Version None)
Quarter: 2006Q2

REPORT INFORMATION
  Report Type: 
  Country: None (occurrence: None)
  Receive Date: 20060427
  Receipt Date: 20050929
  Transmission Date: 20061013
  Serious: Yes (Hospitalization, Other)
  Sender: FDA-Public Use
  Company Number: GB-JNJFOC-20051000015

PATIENT
  Age: 65 Year
  Sex: Female

DRUGS (2)
  1. DAKTARIN [Suspect]
     Indication: ORAL CANDIDIASIS
     Route: 061
     Dates: start: 20020127, end: 20020209
  2. WARFARIN SODIUM [Suspect]
     Indication: ORAL CANDIDIASIS
     Route: 048

REACTIONS (3)
  - CONTUSION [None]
  - HAEMATOMA [None]
  - INTERNATIONAL NORMALISED RATIO INCREASED [None]
